FAERS Safety Report 21762090 (Version 2)
Quarter: 2023Q1

REPORT INFORMATION
  Report Type: Report from Study
  Country: US (occurrence: US)
  Receive Date: 20221221
  Receipt Date: 20230130
  Transmission Date: 20230417
  Serious: Yes (Hospitalization, Other)
  Sender: FDA-Public Use
  Company Number: US-JNJFOC-20211130377

PATIENT
  Age: 83 Year
  Sex: Female
  Weight: 68.2 kg

DRUGS (11)
  1. SELEXIPAG [Suspect]
     Active Substance: SELEXIPAG
     Indication: Pulmonary arterial hypertension
     Route: 048
     Dates: start: 20211106
  2. SELEXIPAG [Suspect]
     Active Substance: SELEXIPAG
     Route: 048
     Dates: start: 20211127
  3. SELEXIPAG [Suspect]
     Active Substance: SELEXIPAG
     Dosage: 200 MG EACH TABLET, 2 AT 10AM AND 2 AT 10 PM,
     Route: 048
     Dates: start: 20211105
  4. SELEXIPAG [Suspect]
     Active Substance: SELEXIPAG
     Dosage: 800 MCG AT MORNING AND 600 MG AT NIGHT
     Route: 048
     Dates: start: 20211205
  5. SELEXIPAG [Suspect]
     Active Substance: SELEXIPAG
     Dosage: EXPIRY DATE 01-AUG-2022
     Route: 048
  6. SELEXIPAG [Suspect]
     Active Substance: SELEXIPAG
     Dosage: 01-JUL-2022
     Route: 048
  7. SELEXIPAG [Suspect]
     Active Substance: SELEXIPAG
     Route: 048
  8. SELEXIPAG [Suspect]
     Active Substance: SELEXIPAG
     Route: 048
     Dates: start: 202110
  9. SELEXIPAG [Suspect]
     Active Substance: SELEXIPAG
     Dosage: UPTRAVI STARTED ABOUT EIGHT MONTHS AGO
     Route: 048
     Dates: start: 2022
  10. SILDENAFIL CITRATE [Concomitant]
     Active Substance: SILDENAFIL CITRATE
     Indication: Product used for unknown indication
  11. OXYGEN [Concomitant]
     Active Substance: OXYGEN

REACTIONS (36)
  - Hypotension [Unknown]
  - Cataract operation [Unknown]
  - Hospitalisation [Unknown]
  - Trismus [Not Recovered/Not Resolved]
  - Headache [Recovered/Resolved]
  - Nausea [Recovering/Resolving]
  - Diarrhoea [Not Recovered/Not Resolved]
  - Constipation [Not Recovered/Not Resolved]
  - Bone pain [Unknown]
  - Dyspnoea [Not Recovered/Not Resolved]
  - Back pain [Not Recovered/Not Resolved]
  - Pain in extremity [Unknown]
  - Middle insomnia [Recovered/Resolved]
  - Product dose omission issue [Unknown]
  - Chronic obstructive pulmonary disease [Unknown]
  - Asthenia [Unknown]
  - Abdominal discomfort [Unknown]
  - Inadequate diet [Unknown]
  - Hypersomnia [Unknown]
  - Weight increased [Not Recovered/Not Resolved]
  - Muscular weakness [Not Recovered/Not Resolved]
  - Sneezing [Recovering/Resolving]
  - Lacrimation increased [Recovering/Resolving]
  - Pain in jaw [Not Recovered/Not Resolved]
  - Anxiety [Unknown]
  - Tremor [Unknown]
  - Alopecia [Not Recovered/Not Resolved]
  - Eye pruritus [Unknown]
  - Ageusia [Unknown]
  - Hypoaesthesia [Recovering/Resolving]
  - Peripheral swelling [Recovering/Resolving]
  - Fatigue [Unknown]
  - Malaise [Unknown]
  - Sinus congestion [Not Recovered/Not Resolved]
  - Feeling hot [Not Recovered/Not Resolved]
  - Restless legs syndrome [Not Recovered/Not Resolved]

NARRATIVE: CASE EVENT DATE: 20210101
